FAERS Safety Report 7321659-5 (Version None)
Quarter: 2011Q1

REPORT INFORMATION
  Report Type: 
  Country: None (occurrence: None)
  Receive Date: 20110228
  Receipt Date: 20101202
  Transmission Date: 20110831
  Serious: No
  Sender: FDA-Public Use
  Company Number: A0897415A

PATIENT
  Age: 38 Year
  Sex: Female

DRUGS (4)
  1. VALTREX [Suspect]
     Indication: GENITAL HERPES
     Dosage: 1G PER DAY
     Route: 048
     Dates: start: 20100801
  2. ZITHROMAX [Concomitant]
     Dates: start: 20101101, end: 20101101
  3. AMOXICILLIN [Concomitant]
     Dates: start: 20101101, end: 20101101
  4. PRENATAL VITAMINS [Concomitant]

REACTIONS (8)
  - FLATULENCE [None]
  - INSOMNIA [None]
  - TREATMENT NONCOMPLIANCE [None]
  - DRUG EXPOSURE DURING PREGNANCY [None]
  - NAUSEA [None]
  - SINUSITIS [None]
  - DEFAECATION URGENCY [None]
  - WITHDRAWAL SYNDROME [None]
